FAERS Safety Report 20600340 (Version 2)
Quarter: 2022Q1

REPORT INFORMATION
  Report Type: Spontaneous
  Country: US (occurrence: US)
  Receive Date: 20220316
  Receipt Date: 20220331
  Transmission Date: 20220423
  Serious: Yes (Other)
  Sender: FDA-Public Use
  Company Number: US-SA-SAC20220315000025

PATIENT
  Age: 61 Year
  Sex: Male

DRUGS (22)
  1. DUPIXENT [Suspect]
     Active Substance: DUPILUMAB
     Indication: Asthma
     Dosage: 300 MG, QOW
     Route: 058
     Dates: start: 20220124
  2. DUPIXENT [Suspect]
     Active Substance: DUPILUMAB
     Indication: Dermatitis atopic
  3. FLONASE ALLERGY RELIEF [Concomitant]
     Active Substance: FLUTICASONE PROPIONATE
  4. SILDENAFIL CITRATE [Concomitant]
     Active Substance: SILDENAFIL CITRATE
  5. LASIX [Concomitant]
     Active Substance: FUROSEMIDE
  6. LUNESTA [Concomitant]
     Active Substance: ESZOPICLONE
  7. SINGULAIR [Concomitant]
     Active Substance: MONTELUKAST SODIUM
  8. ZYRTEC [Concomitant]
     Active Substance: CETIRIZINE HYDROCHLORIDE
  9. DOXYCYCLINE [Concomitant]
     Active Substance: DOXYCYCLINE
  10. CLOBETASOL [Concomitant]
     Active Substance: CLOBETASOL
  11. BUDESONIDE\FORMOTEROL\GLYCOPYRRONIUM [Concomitant]
     Active Substance: BUDESONIDE\FORMOTEROL\GLYCOPYRRONIUM
  12. ALBUTEROL SULFATE [Concomitant]
     Active Substance: ALBUTEROL SULFATE
  13. FLUOCINOLONE ACETONIDE [Concomitant]
     Active Substance: FLUOCINOLONE ACETONIDE
  14. UREA [Concomitant]
     Active Substance: UREA
  15. MOMETASONE FUROATE [Concomitant]
     Active Substance: MOMETASONE FUROATE
  16. OMEPRAZOLE [Concomitant]
     Active Substance: OMEPRAZOLE
  17. PROAIR HFA [Concomitant]
     Active Substance: ALBUTEROL SULFATE
  18. QVAR REDIHALER [Concomitant]
     Active Substance: BECLOMETHASONE DIPROPIONATE
  19. OLOPATADINE [Concomitant]
     Active Substance: OLOPATADINE
     Indication: Conjunctivitis allergic
  20. AUVI-Q [Concomitant]
     Active Substance: EPINEPHRINE
  21. CLOBETASOL [Concomitant]
     Active Substance: CLOBETASOL
     Route: 061
  22. DOXYCYCLINE HYCLATE [Concomitant]
     Active Substance: DOXYCYCLINE HYCLATE
     Route: 048

REACTIONS (5)
  - Skin cancer [Unknown]
  - Back pain [Unknown]
  - Myalgia [Unknown]
  - Arthralgia [Unknown]
  - Joint arthroplasty [Unknown]
